FAERS Safety Report 9493668 (Version 1)
Quarter: 2013Q3

REPORT INFORMATION
  Report Type: Report from Study
  Country: US (occurrence: US)
  Receive Date: 20130902
  Receipt Date: 20130902
  Transmission Date: 20140515
  Serious: Yes (Other)
  Sender: FDA-Public Use
  Company Number: PHEH2013US018325

PATIENT
  Sex: Female
  Weight: 63.49 kg

DRUGS (9)
  1. GILENYA [Suspect]
     Indication: MULTIPLE SCLEROSIS
     Dosage: 0.5 MG, QD
     Route: 048
     Dates: start: 20111007
  2. GILENYA [Suspect]
     Dosage: 0.5 MG, QD
     Route: 048
  3. CALCIUM [Concomitant]
     Dosage: 50 MG, UNK
  4. COQ 10 [Concomitant]
     Dosage: 100 MG, UNK
  5. CYMBALTA [Concomitant]
     Dosage: 30 MG, BID
  6. LYRICA [Concomitant]
     Dosage: 100 MG, QD
  7. NABUMETONE [Concomitant]
     Dosage: 500 MG, QD
  8. ORPHENADRINE CITRATE [Concomitant]
     Dosage: 100 MG, QD
  9. VIT D [Concomitant]
     Dosage: 2000 U, UNK

REACTIONS (1)
  - Fall [Unknown]
